FAERS Safety Report 16321243 (Version 1)
Quarter: 2019Q2

REPORT INFORMATION
  Report Type: Spontaneous
  Country: US (occurrence: US)
  Receive Date: 20190516
  Receipt Date: 20190516
  Transmission Date: 20190711
  Serious: No
  Sender: FDA-Public Use
  Company Number: US-ELI_LILLY_AND_COMPANY-US201905006426

PATIENT
  Sex: Female

DRUGS (1)
  1. TALTZ [Suspect]
     Active Substance: IXEKIZUMAB
     Indication: PSORIASIS
     Dosage: UNK, UNKNOWN
     Route: 058
     Dates: start: 2016

REACTIONS (5)
  - Cystitis noninfective [Recovering/Resolving]
  - Pain [Recovering/Resolving]
  - Urinary tract infection [Recovering/Resolving]
  - Carditis [Recovering/Resolving]
  - Psoriasis [Not Recovered/Not Resolved]
